FAERS Safety Report 5522205-9 (Version None)
Quarter: 2007Q4

REPORT INFORMATION
  Report Type: 
  Country: None (occurrence: None)
  Receive Date: 20071120
  Receipt Date: 20071119
  Transmission Date: 20080405
  Serious: Yes (Disabling, Other)
  Sender: FDA-Public Use
  Company Number: B0495903A

PATIENT
  Age: 57 Year
  Sex: Male
  Weight: 65 kg

DRUGS (6)
  1. ABACAVIR [Suspect]
     Indication: HIV INFECTION
     Dosage: 600MG PER DAY
     Route: 048
     Dates: start: 20070101, end: 20070801
  2. NEVIRAPINE [Concomitant]
     Indication: HIV INFECTION
     Dosage: 400MG PER DAY
     Route: 048
  3. LAMIVUDINE [Concomitant]
     Indication: HIV INFECTION
     Dosage: 300MG PER DAY
     Route: 048
  4. PRAVASTATIN [Concomitant]
  5. FINASTERIDE [Concomitant]
  6. TAMSULOSIN HCL [Concomitant]

REACTIONS (4)
  - DEPRESSED MOOD [None]
  - FATIGUE [None]
  - LETHARGY [None]
  - PANIC ATTACK [None]
